FAERS Safety Report 24814063 (Version 1)
Quarter: 2025Q1

REPORT INFORMATION
  Report Type: Spontaneous
  Country: US (occurrence: US)
  Receive Date: 20250107
  Receipt Date: 20250107
  Transmission Date: 20250408
  Serious: No
  Sender: ALEXION PHARMACEUTICALS
  Company Number: US-AstraZeneca-CH-00778499A

PATIENT

DRUGS (4)
  1. IMFINZI [Suspect]
     Active Substance: DURVALUMAB
     Dosage: UNK UNK, Q4W
     Route: 065
  2. IMFINZI [Suspect]
     Active Substance: DURVALUMAB
     Dosage: UNK UNK, Q4W
     Route: 065
  3. IMFINZI [Suspect]
     Active Substance: DURVALUMAB
     Dosage: UNK UNK, Q4W
     Route: 065
  4. IMFINZI [Suspect]
     Active Substance: DURVALUMAB
     Dosage: UNK UNK, Q4W
     Route: 065

REACTIONS (1)
  - Pain [Unknown]
